FAERS Safety Report 20533200 (Version 2)
Quarter: 2022Q1

REPORT INFORMATION
  Report Type: Report from Study
  Country: GB (occurrence: GB)
  Receive Date: 20220301
  Receipt Date: 20220322
  Transmission Date: 20220423
  Serious: Yes (Other)
  Sender: FDA-Public Use
  Company Number: GB-SAMSUNG BIOEPIS-SB-2022-05127

PATIENT
  Age: 65 Year
  Sex: Female

DRUGS (1)
  1. IMRALDI [Suspect]
     Active Substance: ADALIMUMAB
     Indication: Rheumatoid arthritis
     Route: 058
     Dates: start: 20220131

REACTIONS (8)
  - Illness [Unknown]
  - Dizziness [Unknown]
  - Lethargy [Unknown]
  - Exercise tolerance decreased [Unknown]
  - Insomnia [Unknown]
  - Malaise [Unknown]
  - Wheelchair user [Unknown]
  - Therapeutic product effect incomplete [Unknown]
